FAERS Safety Report 19632496 (Version 1)
Quarter: 2021Q3

REPORT INFORMATION
  Report Type: Spontaneous
  Country: US (occurrence: US)
  Receive Date: 20210728
  Receipt Date: 20210728
  Transmission Date: 20211014
  Serious: No
  Sender: FDA-Public Use
  Company Number: US-ROCHE-2664584

PATIENT
  Sex: Female

DRUGS (3)
  1. XELODA [Suspect]
     Active Substance: CAPECITABINE
     Indication: NASAL NEOPLASM BENIGN
  2. XELODA [Suspect]
     Active Substance: CAPECITABINE
     Indication: PARANASAL SINUS BENIGN NEOPLASM
  3. XELODA [Suspect]
     Active Substance: CAPECITABINE
     Indication: BENIGN MIDDLE EAR NEOPLASM
     Route: 048
     Dates: start: 20200806

REACTIONS (4)
  - Bone disorder [Unknown]
  - Off label use [Unknown]
  - Intentional product use issue [Unknown]
  - Erythema [Unknown]
